FAERS Safety Report 5010018-6 (Version None)
Quarter: 2006Q2

REPORT INFORMATION
  Report Type: 
  Country: None (occurrence: None)
  Receive Date: 20060523
  Receipt Date: 20060510
  Transmission Date: 20061013
  Serious: Yes (Other)
  Sender: FDA-Public Use
  Company Number: EM2006-0276

PATIENT
  Age: 63 Year
  Sex: Male

DRUGS (4)
  1. TOBI; CHIRON CORPORATION(TOBRAMYCIN) NEBULISER SOLUTION, 30MG/5ML [Suspect]
     Indication: PSEUDOMONAS INFECTION
     Dosage: 300 MG, BID, INHALATION
     Route: 055
  2. CYCLOSPORINE [Concomitant]
  3. MYCOPHENOLATE MOFETIL [Concomitant]
  4. STEROIDS [Concomitant]

REACTIONS (1)
  - NEPHROPATHY TOXIC [None]
